FAERS Safety Report 16819620 (Version 3)
Quarter: 2019Q4

REPORT INFORMATION
  Report Type: Spontaneous
  Country: AU (occurrence: AU)
  Receive Date: 20190917
  Receipt Date: 20191105
  Transmission Date: 20200122
  Serious: Yes (Other)
  Sender: FDA-Public Use
  Company Number: AU-SHIRE-AU201930467

PATIENT

DRUGS (2)
  1. ADYNOVATE [Suspect]
     Active Substance: ANTIHEMOPHILIC FACTOR, HUMAN RECOMBINANT
     Indication: FACTOR VIII DEFICIENCY
     Dosage: UNK, PERI-OPERATIVELY EXTRA DOSE
     Route: 042
  2. ADYNOVATE [Suspect]
     Active Substance: ANTIHEMOPHILIC FACTOR, HUMAN RECOMBINANT
     Indication: PROPHYLAXIS
     Dosage: 1250 INTERNATIONAL UNIT, 2X/DAY:BID
     Route: 042

REACTIONS (3)
  - Extra dose administered [Unknown]
  - Ocular neoplasm [Unknown]
  - Rhabdomyosarcoma [Unknown]

NARRATIVE: CASE EVENT DATE: 20190919
